FAERS Safety Report 5264783-3 (Version None)
Quarter: 2007Q1

REPORT INFORMATION
  Report Type: 
  Country: None (occurrence: None)
  Receive Date: 20070314
  Receipt Date: 20070227
  Transmission Date: 20070707
  Serious: Yes (Hospitalization)
  Sender: FDA-Public Use
  Company Number: US-AMGEN-KDL206783

PATIENT
  Sex: Female

DRUGS (2)
  1. ENBREL [Suspect]
     Indication: RHEUMATOID ARTHRITIS
     Route: 058
     Dates: start: 20070108
  2. ARAVA [Concomitant]
     Dates: start: 20060701

REACTIONS (9)
  - ARTHRALGIA [None]
  - BACK PAIN [None]
  - HEART RATE INCREASED [None]
  - HYPOAESTHESIA [None]
  - MENORRHAGIA [None]
  - MUSCULOSKELETAL PAIN [None]
  - PAIN IN EXTREMITY [None]
  - PAIN IN JAW [None]
  - PARAESTHESIA [None]
